FAERS Safety Report 15692305 (Version 2)
Quarter: 2018Q4

REPORT INFORMATION
  Report Type: Spontaneous
  Country: US (occurrence: US)
  Receive Date: 20181205
  Receipt Date: 20181228
  Transmission Date: 20190205
  Serious: Yes (Other)
  Sender: FDA-Public Use
  Company Number: US-ROCHE-2225217

PATIENT
  Sex: Female

DRUGS (1)
  1. HERCEPTIN [Suspect]
     Active Substance: TRASTUZUMAB
     Indication: BREAST CANCER
     Route: 065
     Dates: start: 20181121

REACTIONS (4)
  - Tachycardia [Unknown]
  - Hypoxia [Unknown]
  - Hypertension [Unknown]
  - Chills [Unknown]

NARRATIVE: CASE EVENT DATE: 20181121
